FAERS Safety Report 11988831 (Version 2)
Quarter: 2016Q1

REPORT INFORMATION
  Report Type: Spontaneous
  Country: US (occurrence: US)
  Receive Date: 20160202
  Receipt Date: 20160204
  Transmission Date: 20160526
  Serious: Yes (Other)
  Sender: FDA-Public Use
  Company Number: US-PFIZER INC-2016054612

PATIENT
  Age: 75 Year
  Sex: Male

DRUGS (5)
  1. VIAGRA [Suspect]
     Active Substance: SILDENAFIL CITRATE
     Indication: ERECTILE DYSFUNCTION
     Dosage: 50 MG (HALF OF 100 MG PILL), UNK
  2. FOSAMAX [Suspect]
     Active Substance: ALENDRONATE SODIUM
     Indication: OSTEOPOROSIS
     Dosage: UNK
  3. FORTEO [Suspect]
     Active Substance: TERIPARATIDE
     Indication: OSTEOPOROSIS
     Dosage: UNK
  4. CALCIUM [Concomitant]
     Active Substance: CALCIUM
     Indication: BONE DISORDER
  5. SYNTHROID [Concomitant]
     Active Substance: LEVOTHYROXINE SODIUM
     Indication: THYROID DISORDER
     Dosage: UNK

REACTIONS (9)
  - Oesophageal disorder [Unknown]
  - Abdominal discomfort [Unknown]
  - Condition aggravated [Unknown]
  - Gastrooesophageal reflux disease [Unknown]
  - Dysphagia [Unknown]
  - Drug effect incomplete [Unknown]
  - Choking [Unknown]
  - Oesophageal ulcer [Recovered/Resolved]
  - Duodenal ulcer [Recovered/Resolved]
